FAERS Safety Report 10155152 (Version 1)
Quarter: 2014Q2

REPORT INFORMATION
  Report Type: Spontaneous
  Country: US (occurrence: None)
  Receive Date: 20140505
  Receipt Date: 20140505
  Transmission Date: 20141212
  Serious: Yes (Other)
  Sender: FDA-Public Use
  Company Number: None

PATIENT
  Age: 57 Year
  Sex: Female
  Weight: 63.5 kg

DRUGS (1)
  1. LEVETIRACETAM XR 500 MG [Suspect]
     Indication: CONVULSION
     Dosage: 3 PILLS, TWICE DAILY, TAKEN BY MOUTH
     Route: 048
     Dates: start: 20121213, end: 20140502

REACTIONS (2)
  - Tinnitus [None]
  - Deafness [None]
